FAERS Safety Report 11715280 (Version 1)
Quarter: 2015Q4

REPORT INFORMATION
  Report Type: Spontaneous
  Country: US (occurrence: US)
  Receive Date: 20151109
  Receipt Date: 20151109
  Transmission Date: 20160304
  Serious: Yes (Death, Other)
  Sender: FDA-Public Use
  Company Number: US-ABBVIE-15P-163-1495573-00

PATIENT
  Sex: Male

DRUGS (2)
  1. ANDROGEL [Suspect]
     Active Substance: TESTOSTERONE
     Indication: ANDROGEN REPLACEMENT THERAPY
     Route: 061
     Dates: start: 2006, end: 201410
  2. DEPO-TESTOSTERONE [Suspect]
     Active Substance: TESTOSTERONE CYPIONATE
     Indication: ANDROGEN REPLACEMENT THERAPY
     Route: 065
     Dates: start: 2006, end: 201410

REACTIONS (12)
  - Cerebrovascular accident [Unknown]
  - Cerebrovascular accident [Unknown]
  - Myocardial infarction [Unknown]
  - Cerebrovascular accident [Fatal]
  - Cerebrovascular accident [Unknown]
  - Myocardial infarction [Unknown]
  - Cerebrovascular accident [Unknown]
  - Myocardial infarction [Fatal]
  - Cerebrovascular accident [Unknown]
  - Myocardial infarction [Unknown]
  - Myocardial infarction [Unknown]
  - Myocardial infarction [Unknown]

NARRATIVE: CASE EVENT DATE: 20090107
